FAERS Safety Report 15095379 (Version 1)
Quarter: 2018Q3

REPORT INFORMATION
  Report Type: Report from Study
  Country: FR (occurrence: FR)
  Receive Date: 20180702
  Receipt Date: 20180702
  Transmission Date: 20181010
  Serious: Yes (Hospitalization)
  Sender: FDA-Public Use
  Company Number: FR-ACCORD-068816

PATIENT
  Age: 67 Year
  Sex: Female
  Weight: 47 kg

DRUGS (3)
  1. FLUOROURACIL. [Suspect]
     Active Substance: FLUOROURACIL
     Indication: PANCREATIC NEUROENDOCRINE TUMOUR
     Dosage: CYCLIC (DAY 1 ? DAY 15)
     Dates: start: 20161021, end: 20180108
  2. FOLINIC ACID [Suspect]
     Active Substance: LEUCOVORIN
     Indication: PANCREATIC NEUROENDOCRINE TUMOUR
     Dosage: UNK, CYCLIC (DAY 1 ? DAY 15)
     Dates: start: 20161021, end: 20180108
  3. OXALIPLATIN. [Suspect]
     Active Substance: OXALIPLATIN
     Indication: PANCREATIC NEUROENDOCRINE TUMOUR
     Dosage: CYCLIC (DAY 1 ? DAY 15)
     Dates: start: 20161021, end: 20180108

REACTIONS (6)
  - Gastrointestinal haemorrhage [Recovered/Resolved]
  - Oesophageal candidiasis [Recovered/Resolved]
  - Varicose vein [Not Recovered/Not Resolved]
  - Thrombocytopenia [Recovered/Resolved]
  - Portal hypertension [Not Recovered/Not Resolved]
  - Off label use [Unknown]

NARRATIVE: CASE EVENT DATE: 20161025
